FAERS Safety Report 21688136 (Version 1)
Quarter: 2022Q4

REPORT INFORMATION
  Report Type: Spontaneous
  Country: IT (occurrence: IT)
  Receive Date: 20221206
  Receipt Date: 20221206
  Transmission Date: 20230113
  Serious: Yes (Life-Threatening, Other)
  Sender: FDA-Public Use
  Company Number: None

PATIENT
  Age: 26 Day
  Sex: Male

DRUGS (7)
  1. AZACITIDINE [Suspect]
     Active Substance: AZACITIDINE
     Indication: KMT2A gene mutation
     Dosage: 40 MG/M2, CYCLIC, MAINTENANCE 3 CYCLES
  2. PREDNISONE [Concomitant]
     Active Substance: PREDNISONE
     Indication: Acute lymphocytic leukaemia
     Dosage: PREDNISONE WAS GIVEN WITH EACH CYCLE OF AZACITIDINE
  3. AZACITIDINE [Suspect]
     Active Substance: AZACITIDINE
     Indication: KMT2A gene mutation
     Dosage: 75 MG/M2, CYCLIC (21 DAY CYCLE FOR 4 CYCLES)
  4. AZACITIDINE [Suspect]
     Active Substance: AZACITIDINE
     Indication: KMT2A gene mutation
     Dosage: 55 MILLIGRAM/SQ. METER FOR 7 D EVERY 21 DAYS
  5. AZACITIDINE [Suspect]
     Active Substance: AZACITIDINE
     Indication: KMT2A gene mutation
     Dosage: 55 MILLIGRAM/SQ. METER FOR 5 D EVERY 21 DAYS
  6. AZACITIDINE [Suspect]
     Active Substance: AZACITIDINE
     Indication: B precursor type acute leukaemia
     Dosage: FOR 5 DAYS FOLLOWED BY 7DAYS
  7. AZACITIDINE [Suspect]
     Active Substance: AZACITIDINE
     Indication: KMT2A gene mutation
     Dosage: 55 MILLIGRAM/SQ. METER FOR 7 D EVERY 21 DAYS

REACTIONS (5)
  - Gastrointestinal toxicity [Unknown]
  - Drug ineffective [Unknown]
  - Cytopenia [Unknown]
  - Disease recurrence [Unknown]
  - Off label use [Unknown]
